FAERS Safety Report 26007095 (Version 2)
Quarter: 2025Q4

REPORT INFORMATION
  Report Type: Spontaneous
  Country: US (occurrence: US)
  Receive Date: 20251106
  Receipt Date: 20251216
  Transmission Date: 20260118
  Serious: No
  Sender: VERTEX
  Company Number: US-VERTEX PHARMACEUTICALS-2025-018155

PATIENT
  Age: 61 Year
  Sex: Female

DRUGS (3)
  1. JOURNAVX [Suspect]
     Active Substance: SUZETRIGINE
     Indication: Complex regional pain syndrome
     Dosage: 01 TABLET (50MG), BID
     Route: 061
     Dates: start: 20251017, end: 20251017
  2. JOURNAVX [Suspect]
     Active Substance: SUZETRIGINE
     Indication: Pain
  3. JOURNAVX [Suspect]
     Active Substance: SUZETRIGINE
     Indication: Neuralgia

REACTIONS (2)
  - Hypoaesthesia [Recovered/Resolved]
  - Off label use [Unknown]

NARRATIVE: CASE EVENT DATE: 20251017
